FAERS Safety Report 24060102 (Version 1)
Quarter: 2024Q3

REPORT INFORMATION
  Report Type: Spontaneous
  Country: CA (occurrence: CA)
  Receive Date: 20240708
  Receipt Date: 20240708
  Transmission Date: 20241016
  Serious: Yes (Hospitalization, Other)
  Sender: EPIC PHARM
  Company Number: CA-EPICPHARMA-CA-2024EPCLIT00797

PATIENT
  Age: 87 Year
  Sex: Male

DRUGS (4)
  1. LEVETIRACETAM [Suspect]
     Active Substance: LEVETIRACETAM
     Indication: Partial seizures
     Route: 065
  2. LEVETIRACETAM [Suspect]
     Active Substance: LEVETIRACETAM
     Route: 065
  3. VALPROIC ACID [Suspect]
     Active Substance: VALPROIC ACID
     Indication: Partial seizures
     Route: 065
  4. CLOBAZAM [Suspect]
     Active Substance: CLOBAZAM
     Indication: Partial seizures
     Route: 065

REACTIONS (2)
  - Delirium [Recovering/Resolving]
  - Fall [Recovering/Resolving]
